FAERS Safety Report 7878670-5 (Version None)
Quarter: 2011Q4

REPORT INFORMATION
  Report Type: 
  Country: None (occurrence: None)
  Receive Date: 20111101
  Receipt Date: 20111025
  Transmission Date: 20120403
  Serious: Yes (Disabling, Other)
  Sender: FDA-Public Use
  Company Number: US-PURDUE-USA-2011-0076763

PATIENT
  Age: 49 Year
  Sex: Male

DRUGS (2)
  1. ALCOHOL [Suspect]
     Indication: SUBSTANCE ABUSE
  2. OXYCONTIN [Suspect]
     Indication: PAIN

REACTIONS (4)
  - DRUG DEPENDENCE [None]
  - SUBSTANCE ABUSE [None]
  - SEXUAL ABUSE [None]
  - ALCOHOLISM [None]
